FAERS Safety Report 4429360-2 (Version None)
Quarter: 2004Q3

REPORT INFORMATION
  Report Type: 
  Country: None (occurrence: None)
  Receive Date: 20040816
  Receipt Date: 20040802
  Transmission Date: 20050211
  Serious: Yes (Death)
  Sender: FDA-Public Use
  Company Number: S04-USA-02968-01

PATIENT
  Age: 43 Year
  Sex: Male

DRUGS (6)
  1. CELEXA [Suspect]
     Indication: DEPRESSION
     Dosage: UNK
     Route: 065
     Dates: start: 20040403, end: 20040403
  2. CELEXA [Suspect]
     Indication: DEPRESSION
     Dosage: 40 MG QD; PO
     Route: 048
     Dates: start: 20020101, end: 20040402
  3. DURAGESIC [Concomitant]
  4. CLONIDINE HCL [Concomitant]
  5. XANAX [Concomitant]
  6. PERCOCET [Concomitant]

REACTIONS (8)
  - ACCIDENTAL OVERDOSE [None]
  - ARTERIOSCLEROSIS [None]
  - CARDIOMEGALY [None]
  - CORONARY ARTERY STENOSIS [None]
  - DRUG TOXICITY [None]
  - HEPATOMEGALY [None]
  - HYPERTENSION [None]
  - NEPHROSCLEROSIS [None]
